FAERS Safety Report 11077707 (Version 2)
Quarter: 2015Q3

REPORT INFORMATION
  Report Type: Spontaneous
  Country: US (occurrence: US)
  Receive Date: 20150430
  Receipt Date: 20150728
  Transmission Date: 20151125
  Serious: Yes (Other)
  Sender: FDA-Public Use
  Company Number: US-BEH-2012031990

PATIENT
  Age: 41 Year
  Sex: Male

DRUGS (15)
  1. ACYCLOVIR. [Concomitant]
     Active Substance: ACYCLOVIR
  2. LEVOTHYROXINE. [Concomitant]
     Active Substance: LEVOTHYROXINE
  3. HIZENTRA [Suspect]
     Active Substance: HUMAN IMMUNOGLOBULIN G
     Indication: IMMUNODEFICIENCY COMMON VARIABLE
     Dosage: SATURDAY AND SUNDAY EACH TAKING 2 HOURS TO COMPLETE
     Route: 058
  4. CALCIUM [Concomitant]
     Active Substance: CALCIUM
  5. FOSAMAX [Concomitant]
     Active Substance: ALENDRONATE SODIUM
  6. NASONEX [Concomitant]
     Active Substance: MOMETASONE FUROATE
  7. FLOVENT [Concomitant]
     Active Substance: FLUTICASONE PROPIONATE
  8. VENTOLIN [Concomitant]
     Active Substance: ALBUTEROL SULFATE
  9. IMURAN [Concomitant]
     Active Substance: AZATHIOPRINE
  10. VALTREX [Concomitant]
     Active Substance: VALACYCLOVIR HYDROCHLORIDE
  11. VITAMIN D [Concomitant]
     Active Substance: CHOLECALCIFEROL
  12. HIZENTRA [Suspect]
     Active Substance: HUMAN IMMUNOGLOBULIN G
     Indication: SELECTIVE IGA IMMUNODEFICIENCY
     Dosage: FROM JAN-2011 UNTIL APR-2012
     Route: 058
  13. HIZENTRA [Suspect]
     Active Substance: HUMAN IMMUNOGLOBULIN G
  14. CLARITIN [Concomitant]
     Active Substance: LORATADINE
  15. RITUXIMAB [Concomitant]
     Active Substance: RITUXIMAB

REACTIONS (16)
  - Splenomegaly [Not Recovered/Not Resolved]
  - Nausea [Not Recovered/Not Resolved]
  - Neck mass [Not Recovered/Not Resolved]
  - Platelet count decreased [Not Recovered/Not Resolved]
  - Headache [Not Recovered/Not Resolved]
  - Dyspnoea [Not Recovered/Not Resolved]
  - Axillary mass [Not Recovered/Not Resolved]
  - Pain [Unknown]
  - Headache [Unknown]
  - Tracheal mass [Not Recovered/Not Resolved]
  - Pulmonary mass [Not Recovered/Not Resolved]
  - Nausea [Unknown]
  - Chills [Unknown]
  - B-cell lymphoma [Not Recovered/Not Resolved]
  - Abdominal mass [Not Recovered/Not Resolved]
  - Leukopenia [Not Recovered/Not Resolved]

NARRATIVE: CASE EVENT DATE: 201101
